FAERS Safety Report 17511357 (Version 1)
Quarter: 2020Q1

REPORT INFORMATION
  Report Type: Spontaneous
  Country: GB (occurrence: GB)
  Receive Date: 20200306
  Receipt Date: 20200306
  Transmission Date: 20200409
  Serious: Yes (Other)
  Sender: FDA-Public Use
  Company Number: GB-BRISTOL-MYERS SQUIBB COMPANY-BMS-2020-017608

PATIENT
  Age: 71 Year
  Sex: Male

DRUGS (3)
  1. AMOXICILLIN. [Concomitant]
     Active Substance: AMOXICILLIN
     Indication: PRODUCT USED FOR UNKNOWN INDICATION
     Dosage: UNK
     Route: 048
  2. KENALOG [Suspect]
     Active Substance: TRIAMCINOLONE ACETONIDE
     Indication: ARTHRALGIA
     Dosage: 40 MILLIGRAM, 15 DAYS
     Route: 014
     Dates: start: 20191217, end: 20200101
  3. LIDOCAINE. [Suspect]
     Active Substance: LIDOCAINE
     Indication: ARTHRALGIA
     Dosage: 4 MILLILITER
     Route: 014
     Dates: start: 20191217

REACTIONS (3)
  - Erythema [Unknown]
  - Infection [Recovered/Resolved with Sequelae]
  - Swelling [Unknown]

NARRATIVE: CASE EVENT DATE: 20191230
